FAERS Safety Report 16502776 (Version 1)
Quarter: 2019Q3

REPORT INFORMATION
  Report Type: Spontaneous
  Country: US (occurrence: US)
  Receive Date: 20190701
  Receipt Date: 20190701
  Transmission Date: 20191004
  Serious: No
  Sender: FDA-Public Use
  Company Number: US-MTPC-MTDA2019-0058290

PATIENT

DRUGS (2)
  1. RADICAVA [Suspect]
     Active Substance: EDARAVONE
     Indication: AMYOTROPHIC LATERAL SCLEROSIS
     Dosage: 60 MG OVER 60 MIN, DAILY DOSING FOR 14 DAYS FOLLOWED BY A 14-DAY DRUG-FREE PERIOD
     Route: 042
  2. RADICAVA [Suspect]
     Active Substance: EDARAVONE
     Dosage: 60 MG OVER 60 MIN, DAILY DOSING FOR 10 DAYS OUT OF 14-DAY PERIODS, FOLLOWED BY A 14-DAY DRUG-FREE PE
     Route: 042

REACTIONS (3)
  - Central venous catheterisation [Unknown]
  - Procedural pain [Unknown]
  - Post procedural discomfort [Unknown]
